FAERS Safety Report 25714428 (Version 1)
Quarter: 2025Q3

REPORT INFORMATION
  Report Type: Spontaneous
  Country: SG (occurrence: SG)
  Receive Date: 20250822
  Receipt Date: 20250822
  Transmission Date: 20251021
  Serious: Yes (Other)
  Sender: REGENERON
  Company Number: SG-BAYER-2025A109171

PATIENT
  Age: 63 Year
  Sex: Male

DRUGS (1)
  1. EYLEA [Suspect]
     Active Substance: AFLIBERCEPT
     Indication: Polypoidal choroidal vasculopathy
     Dates: start: 2024

REACTIONS (2)
  - Blindness [Recovered/Resolved with Sequelae]
  - Eye haemorrhage [Unknown]
